FAERS Safety Report 11837988 (Version 1)
Quarter: 2015Q4

REPORT INFORMATION
  Report Type: Report from Study
  Country: MX (occurrence: MX)
  Receive Date: 20151215
  Receipt Date: 20151215
  Transmission Date: 20160305
  Serious: Yes (Hospitalization)
  Sender: FDA-Public Use
  Company Number: MX-ABBVIE-15P-107-1519617-00

PATIENT
  Age: 36 Year
  Sex: Male

DRUGS (2)
  1. RIBAVIRIN. [Concomitant]
     Active Substance: RIBAVIRIN
     Indication: HEPATITIS C
     Dosage: 1-0-1
     Route: 048
     Dates: start: 20151014, end: 20151207
  2. VIEKIRA PAK [Suspect]
     Active Substance: DASABUVIR\OMBITASVIR\PARITAPREVIR\RITONAVIR
     Indication: HEPATITIS C
     Dosage: 3-0-1
     Route: 048
     Dates: start: 20151014, end: 20151207

REACTIONS (1)
  - Discomfort [Not Recovered/Not Resolved]

NARRATIVE: CASE EVENT DATE: 201512
